FAERS Safety Report 11225743 (Version 1)
Quarter: 2015Q2

REPORT INFORMATION
  Report Type: Spontaneous
  Country: US (occurrence: US)
  Receive Date: 20150629
  Receipt Date: 20150629
  Transmission Date: 20150821
  Serious: No
  Sender: FDA-Public Use
  Company Number: US-BAUSCH-BL-2014-008911

PATIENT
  Sex: Female

DRUGS (3)
  1. EPIDUO [Concomitant]
     Active Substance: ADAPALENE\BENZOYL PEROXIDE
     Indication: PRODUCT USED FOR UNKNOWN INDICATION
  2. SOLODYN [Suspect]
     Active Substance: MINOCYCLINE HYDROCHLORIDE
     Indication: ACNE
     Route: 048
     Dates: start: 201408, end: 201411
  3. ATRALIN [Suspect]
     Active Substance: TRETINOIN
     Indication: ACNE
     Route: 061
     Dates: start: 201408, end: 201411

REACTIONS (7)
  - Skin fissures [Unknown]
  - Skin exfoliation [Unknown]
  - Alopecia [Unknown]
  - Erythema [Unknown]
  - Vision blurred [Unknown]
  - Dizziness [Unknown]
  - Dry skin [Unknown]

NARRATIVE: CASE EVENT DATE: 2014
